FAERS Safety Report 25429003 (Version 1)
Quarter: 2025Q2

REPORT INFORMATION
  Report Type: Spontaneous
  Country: US (occurrence: US)
  Receive Date: 20250612
  Receipt Date: 20250612
  Transmission Date: 20250717
  Serious: Yes (Other)
  Sender: RADIUS PHARM
  Company Number: US-RADIUS HEALTH INC.-2024US004224

PATIENT
  Age: 61 Year
  Sex: Female

DRUGS (1)
  1. TYMLOS [Suspect]
     Active Substance: ABALOPARATIDE
     Indication: Senile osteoporosis
     Dosage: 80 MICROGRAM, QD
     Route: 058
     Dates: start: 20240528

REACTIONS (13)
  - Pneumonia [Unknown]
  - Breast tenderness [Unknown]
  - Bone lesion [Not Recovered/Not Resolved]
  - Neck pain [Unknown]
  - Abdominal distension [Not Recovered/Not Resolved]
  - Hypercalcaemia [Recovered/Resolved]
  - Injection site bruising [Unknown]
  - Headache [Recovered/Resolved]
  - Haemorrhage [Unknown]
  - Pustule [Unknown]
  - Pollakiuria [Unknown]
  - Contusion [Unknown]
  - Nausea [Unknown]

NARRATIVE: CASE EVENT DATE: 20240616
